FAERS Safety Report 9825321 (Version 1)
Quarter: 2014Q1

REPORT INFORMATION
  Report Type: Spontaneous
  Country: US (occurrence: None)
  Receive Date: 20140115
  Receipt Date: 20140115
  Transmission Date: 20141002
  Serious: No
  Sender: FDA-Public Use
  Company Number: None

PATIENT
  Sex: Male

DRUGS (1)
  1. INTERFERON [Suspect]
     Indication: HEPATITIS C
     Dates: start: 1997

REACTIONS (2)
  - Weight decreased [None]
  - Malaise [None]
